FAERS Safety Report 18243708 (Version 2)
Quarter: 2020Q3

REPORT INFORMATION
  Report Type: Spontaneous
  Country: US (occurrence: US)
  Receive Date: 20200908
  Receipt Date: 20200928
  Transmission Date: 20201103
  Serious: Yes (Death, Hospitalization)
  Sender: FDA-Public Use
  Company Number: US-TEVA-2020-US-1824612

PATIENT
  Age: 46 Year
  Sex: Female

DRUGS (7)
  1. FOLATE [Suspect]
     Active Substance: FOLATE SODIUM
     Indication: PANCYTOPENIA
     Route: 065
  2. LEUCOVORIN. [Suspect]
     Active Substance: LEUCOVORIN
     Indication: PANCYTOPENIA
     Route: 065
  3. LEUCOVORIN. [Suspect]
     Active Substance: LEUCOVORIN
     Indication: HYPOVITAMINOSIS
  4. FOLATE [Suspect]
     Active Substance: FOLATE SODIUM
     Indication: HYPOVITAMINOSIS
  5. LEUCOVORIN. [Suspect]
     Active Substance: LEUCOVORIN
     Indication: TOXICITY TO VARIOUS AGENTS
  6. FOLATE [Suspect]
     Active Substance: FOLATE SODIUM
     Indication: TOXICITY TO VARIOUS AGENTS
  7. METHOTREXATE. [Suspect]
     Active Substance: METHOTREXATE
     Indication: SYSTEMIC LUPUS ERYTHEMATOSUS
     Dosage: LOW?DOSE METHOTREXATE FOR 5 YEARS
     Route: 065

REACTIONS (8)
  - Pulmonary alveolar haemorrhage [Fatal]
  - Oral pain [Unknown]
  - Pancytopenia [Unknown]
  - Mental status changes [Unknown]
  - Myelosuppression [Unknown]
  - Toxicity to various agents [Unknown]
  - Respiratory failure [Fatal]
  - Drug ineffective [Unknown]
